FAERS Safety Report 9664027 (Version 3)
Quarter: 2014Q1

REPORT INFORMATION
  Report Type: Spontaneous
  Country: IT (occurrence: IT)
  Receive Date: 20131101
  Receipt Date: 20140103
  Transmission Date: 20141002
  Serious: Yes (Other)
  Sender: FDA-Public Use
  Company Number: IT-PFIZER INC-2013308125

PATIENT
  Age: 17 Year
  Sex: Female
  Weight: 60 kg

DRUGS (8)
  1. ARACYTIN [Suspect]
     Indication: ACUTE MYELOID LEUKAEMIA
     Dosage: UNK
     Dates: start: 201304, end: 2013
  2. ARACYTIN [Suspect]
     Dosage: 70 MG, CYCLIC
     Route: 037
     Dates: start: 20130926
  3. CITARABINA HOSPIRA [Suspect]
     Indication: ACUTE MYELOID LEUKAEMIA
     Dosage: UNK
     Dates: start: 201304, end: 2013
  4. CITARABINA HOSPIRA [Suspect]
     Dosage: 6000 MG/M2, CYCLIC
     Route: 042
     Dates: start: 20130927
  5. ETOPOSIDE-TEVA [Suspect]
     Indication: ACUTE MYELOID LEUKAEMIA
     Dosage: UNK
     Dates: start: 201304, end: 2013
  6. ETOPOSIDE-TEVA [Suspect]
     Dosage: 125 MG/M2, CYCLIC
     Route: 042
     Dates: start: 20130928
  7. ZANTAC [Concomitant]
     Dosage: 50 MG, DAILY
     Route: 042
     Dates: start: 20130927, end: 20131001
  8. ONDANSETRON HIKMA [Concomitant]
     Dosage: 8 MG, DAILY
     Route: 042
     Dates: start: 20130927, end: 20131001

REACTIONS (1)
  - Febrile bone marrow aplasia [Recovered/Resolved]
